FAERS Safety Report 24660475 (Version 2)
Quarter: 2024Q4

REPORT INFORMATION
  Report Type: Report from Study
  Country: IN (occurrence: IN)
  Receive Date: 20241125
  Receipt Date: 20241206
  Transmission Date: 20250115
  Serious: Yes (Hospitalization)
  Sender: SANDOZ
  Company Number: IN-002147023-NVSC2024IN223685

PATIENT
  Age: 50 Year
  Sex: Female
  Weight: 70 kg

DRUGS (6)
  1. FULVESTRANT [Suspect]
     Active Substance: FULVESTRANT
     Indication: Breast cancer
     Dosage: 500 MG PER VIAL
     Route: 030
     Dates: start: 20240724, end: 20241113
  2. FULVESTRANT [Suspect]
     Active Substance: FULVESTRANT
     Indication: PIK3CA-activated mutation
  3. METFORMIN [Concomitant]
     Active Substance: METFORMIN HYDROCHLORIDE
     Indication: Hyperglycaemia
     Dosage: 500 MG, BID
     Route: 048
     Dates: start: 20240731, end: 20241117
  4. METOCLOPRAMIDE HYDROCHLORIDE [Concomitant]
     Active Substance: METOCLOPRAMIDE HYDROCHLORIDE
     Indication: Supportive care
     Dosage: 10 MG, QD
     Route: 048
     Dates: start: 20240628, end: 20241117
  5. TRAMADOL [Concomitant]
     Active Substance: TRAMADOL
     Indication: Supportive care
     Dosage: 50 MG, QD
     Route: 048
     Dates: start: 20240628, end: 20241117
  6. ACETAMINOPHEN\TRAMADOL [Concomitant]
     Active Substance: ACETAMINOPHEN\TRAMADOL
     Indication: Supportive care
     Dosage: 37.5+32.5, OD
     Route: 048
     Dates: start: 20230628, end: 20241117

REACTIONS (2)
  - Hyperglycaemia [Recovered/Resolved]
  - Asthenia [Recovering/Resolving]

NARRATIVE: CASE EVENT DATE: 20241117
